FAERS Safety Report 4456641-9 (Version None)
Quarter: 2004Q3

REPORT INFORMATION
  Report Type: 
  Country: None (occurrence: None)
  Receive Date: 20040921
  Receipt Date: 20040908
  Transmission Date: 20050211
  Serious: Yes (Death)
  Sender: FDA-Public Use
  Company Number: A02200402710

PATIENT
  Age: 51 Year
  Sex: Female

DRUGS (1)
  1. STILNOX - (ZOLPIDEM) TABLET - 10 MG [Suspect]
     Route: 048
     Dates: end: 20040323

REACTIONS (3)
  - DISTURBANCE IN ATTENTION [None]
  - DRUG LEVEL ABOVE THERAPEUTIC [None]
  - ROAD TRAFFIC ACCIDENT [None]
